FAERS Safety Report 26144703 (Version 1)
Quarter: 2025Q4

REPORT INFORMATION
  Report Type: Spontaneous
  Country: CA (occurrence: CA)
  Receive Date: 20251211
  Receipt Date: 20251211
  Transmission Date: 20260118
  Serious: Yes (Death, Hospitalization, Other)
  Sender: CSL BEHRING
  Company Number: CA-BEH-2025227505

PATIENT
  Sex: Female

DRUGS (1)
  1. .ALPHA.1-PROTEINASE INHIBITOR HUMAN [Suspect]
     Active Substance: .ALPHA.1-PROTEINASE INHIBITOR HUMAN
     Indication: Product used for unknown indication
     Dosage: 1200 MG, QW
     Route: 042

REACTIONS (6)
  - Hepatic cirrhosis [Fatal]
  - Sepsis [Fatal]
  - Hepatic failure [Fatal]
  - Abdominal pain upper [Fatal]
  - Chest pain [Fatal]
  - Dyspnoea [Fatal]
